FAERS Safety Report 17894531 (Version 2)
Quarter: 2020Q3

REPORT INFORMATION
  Report Type: Spontaneous
  Country: US (occurrence: US)
  Receive Date: 20200615
  Receipt Date: 20200716
  Transmission Date: 20201103
  Serious: Yes (Other)
  Sender: FDA-Public Use
  Company Number: US-ROCHE-2616083

PATIENT
  Age: 52 Year
  Sex: Female
  Weight: 118.49 kg

DRUGS (11)
  1. DULOXETINE. [Concomitant]
     Active Substance: DULOXETINE
     Indication: DEPRESSION
     Dates: end: 2016
  2. AUBAGIO [Concomitant]
     Active Substance: TERIFLUNOMIDE
  3. WARFARIN [Concomitant]
     Active Substance: WARFARIN
     Indication: ANTIPHOSPHOLIPID SYNDROME
     Dates: start: 2005
  4. BACLOFEN. [Concomitant]
     Active Substance: BACLOFEN
  5. TYLENOL [Concomitant]
     Active Substance: ACETAMINOPHEN
  6. BENADRYL [Concomitant]
     Active Substance: DIPHENHYDRAMINE HYDROCHLORIDE
  7. WARFARIN [Concomitant]
     Active Substance: WARFARIN
     Indication: ANTIPHOSPHOLIPID ANTIBODIES
     Dosage: 6 DAYS A WEEK
     Dates: start: 2005
  8. OCREVUS [Suspect]
     Active Substance: OCRELIZUMAB
     Indication: RELAPSING-REMITTING MULTIPLE SCLEROSIS
     Route: 042
     Dates: start: 201707
  9. DULOXETINE. [Concomitant]
     Active Substance: DULOXETINE
     Indication: PAIN
     Dates: start: 2018
  10. GABAPENTIN. [Concomitant]
     Active Substance: GABAPENTIN
     Dates: start: 2018
  11. GABAPENTIN. [Concomitant]
     Active Substance: GABAPENTIN
     Dates: start: 2018

REACTIONS (5)
  - Multiple sclerosis relapse [Recovered/Resolved]
  - Off label use [Unknown]
  - Intentional product misuse [Unknown]
  - JC polyomavirus test positive [Unknown]
  - Pain [Unknown]

NARRATIVE: CASE EVENT DATE: 201904
